FAERS Safety Report 4416910-5 (Version None)
Quarter: 2004Q3

REPORT INFORMATION
  Report Type: 
  Country: None (occurrence: None)
  Receive Date: 20040804
  Receipt Date: 20040804
  Transmission Date: 20050211
  Serious: Yes (Death, Hospitalization)
  Sender: FDA-Public Use
  Company Number: None

PATIENT
  Age: 86 Year
  Sex: Male
  Weight: 78.4723 kg

DRUGS (9)
  1. TOPOTECAN 1.25 MG/M2 [Suspect]
     Indication: OVARIAN CANCER
     Dosage: 2.2 MG DAYS 1,2,3 IV
     Route: 042
     Dates: start: 20040720, end: 20040722
  2. CARBOPLATIN [Suspect]
     Dosage: 405 DAY 3 IV
     Route: 042
     Dates: start: 20040722, end: 20070722
  3. SYNTHROID [Concomitant]
  4. LIPITOR [Concomitant]
  5. NEURONTIN [Concomitant]
  6. ZOFRAN [Concomitant]
  7. PERCOCET [Concomitant]
  8. HYDROCHLOROTHIAZIDE [Concomitant]
  9. PROTONIX [Concomitant]

REACTIONS (11)
  - ASCITES [None]
  - DEPRESSED LEVEL OF CONSCIOUSNESS [None]
  - FLATULENCE [None]
  - HYPOTENSION [None]
  - METASTASES TO ABDOMINAL CAVITY [None]
  - NEUTROPENIA [None]
  - PLEURAL EFFUSION [None]
  - POST PROCEDURAL NAUSEA [None]
  - RENAL FAILURE ACUTE [None]
  - RESPIRATORY FAILURE [None]
  - SEPSIS [None]
